FAERS Safety Report 23844980 (Version 1)
Quarter: 2024Q2

REPORT INFORMATION
  Report Type: Report from Study
  Country: US (occurrence: US)
  Receive Date: 20240511
  Receipt Date: 20240511
  Transmission Date: 20240716
  Serious: Yes (Other)
  Sender: FDA-Public Use
  Company Number: US-ARGENX-2024-ARGX-US003011

PATIENT

DRUGS (1)
  1. VYVGART [Suspect]
     Active Substance: EFGARTIGIMOD ALFA-FCAB
     Indication: Myasthenia gravis
     Dosage: 1060 MG, 1200MG KIT (1060MG/125ML 0.9%  NZCL)
     Route: 042
     Dates: start: 20240417

REACTIONS (4)
  - Hypertension [Unknown]
  - Vision blurred [Unknown]
  - Oedema peripheral [Unknown]
  - Headache [Recovered/Resolved]

NARRATIVE: CASE EVENT DATE: 20240502
